FAERS Safety Report 18521299 (Version 1)
Quarter: 2020Q4

REPORT INFORMATION
  Report Type: Spontaneous
  Country: US (occurrence: US)
  Receive Date: 20201118
  Receipt Date: 20201118
  Transmission Date: 20210114
  Serious: Yes (Life-Threatening, Hospitalization)
  Sender: FDA-Public Use
  Company Number: None

PATIENT
  Age: 71 Year
  Sex: Male

DRUGS (2)
  1. MELOXICAM. [Suspect]
     Active Substance: MELOXICAM
  2. ASPIRIN. [Suspect]
     Active Substance: ASPIRIN

REACTIONS (3)
  - Fall [None]
  - Cerebral haemorrhage [None]
  - Haemothorax [None]

NARRATIVE: CASE EVENT DATE: 20201020
